FAERS Safety Report 10497826 (Version 3)
Quarter: 2014Q4

REPORT INFORMATION
  Report Type: Spontaneous
  Country: US (occurrence: US)
  Receive Date: 20141006
  Receipt Date: 20141107
  Transmission Date: 20150528
  Serious: Yes (Hospitalization, Other)
  Sender: FDA-Public Use
  Company Number: US-AMGEN-USASP2014075288

PATIENT
  Age: 17 Year
  Sex: Female
  Weight: 83.9 kg

DRUGS (6)
  1. ZANTAC [Concomitant]
     Active Substance: RANITIDINE HYDROCHLORIDE
     Indication: ABDOMINAL PAIN UPPER
     Dosage: 75 MG, QD
     Route: 048
  2. DEXAMETHASONE                      /00016002/ [Concomitant]
  3. NPLATE [Suspect]
     Active Substance: ROMIPLOSTIM
     Indication: IMMUNE THROMBOCYTOPENIC PURPURA
     Dosage: 655 MUG, QWK
     Route: 058
     Dates: start: 20140530
  4. PENICILLIN                         /00000901/ [Concomitant]
     Active Substance: PENICILLIN
     Indication: PROPHYLAXIS
     Dosage: 500 MG, QD
     Route: 048
  5. AYGESTIN [Concomitant]
     Active Substance: NORETHINDRONE ACETATE
     Indication: CONTRACEPTION
  6. AYGESTIN [Concomitant]
     Active Substance: NORETHINDRONE ACETATE
     Indication: MENSTRUATION DELAYED
     Dosage: 5 MG, QD
     Route: 048

REACTIONS (7)
  - Therapeutic response decreased [Not Recovered/Not Resolved]
  - Thrombocytopenia [Recovering/Resolving]
  - Petechiae [Unknown]
  - Gingival bleeding [Not Recovered/Not Resolved]
  - Headache [Unknown]
  - Arthralgia [Not Recovered/Not Resolved]
  - Contusion [Unknown]

NARRATIVE: CASE EVENT DATE: 20140929
